FAERS Safety Report 12943147 (Version 1)
Quarter: 2016Q4

REPORT INFORMATION
  Report Type: Spontaneous
  Country: US (occurrence: US)
  Receive Date: 20161115
  Receipt Date: 20161115
  Transmission Date: 20170207
  Serious: Yes (Other)
  Sender: FDA-Public Use
  Company Number: US-BAYER-2016-217612

PATIENT
  Age: 23 Year
  Sex: Female
  Weight: 74.38 kg

DRUGS (3)
  1. XANAX [Concomitant]
     Active Substance: ALPRAZOLAM
     Dosage: UNK
  2. AFRIN ORIGINAL [Suspect]
     Active Substance: OXYMETAZOLINE HYDROCHLORIDE
     Dosage: 5 SPRAYS PER NOSTRIL, QD
     Route: 045
     Dates: start: 1978
  3. MORPHINE [Concomitant]
     Active Substance: MORPHINE
     Dosage: UNK

REACTIONS (3)
  - Product use issue [Unknown]
  - Drug dependence [Unknown]
  - Product container issue [None]

NARRATIVE: CASE EVENT DATE: 1978
